FAERS Safety Report 19271475 (Version 4)
Quarter: 2021Q2

REPORT INFORMATION
  Report Type: Report from Study
  Country: JP (occurrence: JP)
  Receive Date: 20210518
  Receipt Date: 20210618
  Transmission Date: 20210717
  Serious: Yes (Hospitalization, Other)
  Sender: FDA-Public Use
  Company Number: JP-BRISTOL-MYERS SQUIBB COMPANY-BMS-2021-042469

PATIENT
  Age: 63 Year
  Sex: Female
  Weight: 46.8 kg

DRUGS (15)
  1. TARLIGE [Concomitant]
     Active Substance: MIROGABALIN BESYLATE
     Indication: SPONDYLOLISTHESIS
     Dosage: 15 MILLIGRAM, Q12H
     Route: 048
  2. UREA. [Concomitant]
     Active Substance: UREA
     Indication: DRY SKIN PROPHYLAXIS
     Dosage: APPROPRIATE
     Route: 062
     Dates: start: 20210226
  3. LIPACREON [Concomitant]
     Active Substance: PANCRELIPASE
     Indication: PANCREATIC ENZYME REPLACEMENT THERAPY
     Dosage: 600 MILLIGRAM, Q8H
     Route: 048
     Dates: start: 20210205
  4. AZULENE [Concomitant]
     Active Substance: AZULENE
     Indication: DRY MOUTH
     Dosage: APPROPRIATE
     Route: 002
     Dates: start: 20210217
  5. SALIVEHT [Concomitant]
     Indication: DRY MOUTH
     Dosage: APPROPRIATE
     Route: 002
     Dates: start: 20210217
  6. CALONAL [Concomitant]
     Active Substance: ACETAMINOPHEN
     Indication: CANCER PAIN
     Dosage: 600 MILLIGRAM, Q6H
     Route: 048
  7. GLYCERIN [GLYCEROL] [Concomitant]
     Active Substance: GLYCERIN
     Indication: CONSTIPATION
     Dosage: 60 MILLILITER, PRN
     Route: 054
     Dates: start: 20210205
  8. TEGAFUR,GIMERACIL,OTERACIL POTASSIUM [Suspect]
     Active Substance: GIMERACIL\OTERACIL\TEGAFUR
     Indication: PANCREATIC CARCINOMA
     Dosage: UNK
     Route: 065
     Dates: start: 20210126, end: 20210310
  9. REBAMIPIDE [Concomitant]
     Active Substance: REBAMIPIDE
     Indication: GASTRITIS PROPHYLAXIS
     Dosage: 100 MILLIGRAM, Q12H
     Route: 048
  10. OXYCODONE [Concomitant]
     Active Substance: OXYCODONE
     Indication: CANCER PAIN
     Dosage: 10 MILLIGRAM, Q12H
     Route: 048
     Dates: start: 20210205
  11. NIVOLUMAB [Suspect]
     Active Substance: NIVOLUMAB
     Indication: PANCREATIC CARCINOMA
     Dosage: 480 MILLIGRAM, Q4WK
     Route: 041
     Dates: start: 20210126
  12. LOXOPROFEN NA [Concomitant]
     Active Substance: LOXOPROFEN SODIUM
     Indication: CANCER PAIN
     Dosage: 60 MILLIGRAM, Q8H
     Route: 048
     Dates: end: 20210428
  13. TRAMAL [Concomitant]
     Active Substance: TRAMADOL
     Indication: CANCER PAIN
     Dosage: 25 MG, 2?3 TIMES/DAY
     Route: 048
  14. MAGMITT [Concomitant]
     Active Substance: MAGNESIUM OXIDE
     Indication: CONSTIPATION
     Dosage: 330 MILLIGRAM, Q8H
     Route: 048
     Dates: start: 20210126
  15. SENNOSIDE [SENNOSIDE A+B] [Concomitant]
     Active Substance: SENNOSIDES A AND B
     Indication: CONSTIPATION
     Dosage: 12 MILLIGRAM, PRN
     Route: 048
     Dates: start: 20210205

REACTIONS (3)
  - Vomiting [Recovered/Resolved]
  - Decreased appetite [Recovered/Resolved]
  - Gastric ulcer [Recovered/Resolved]

NARRATIVE: CASE EVENT DATE: 20210429
